FAERS Safety Report 9717749 (Version 1)
Quarter: 2013Q4

REPORT INFORMATION
  Report Type: Spontaneous
  Country: US (occurrence: US)
  Receive Date: 20131127
  Receipt Date: 20131127
  Transmission Date: 20140711
  Serious: Yes (Hospitalization)
  Sender: FDA-Public Use
  Company Number: US-GLAXOSMITHKLINE-A1050800A

PATIENT
  Age: 78 Year
  Sex: Male

DRUGS (7)
  1. SEREVENT [Suspect]
     Indication: CHRONIC OBSTRUCTIVE PULMONARY DISEASE
     Dosage: 1PUFF TWICE PER DAY
     Route: 055
     Dates: end: 2013
  2. HYDROCODONE [Concomitant]
  3. TAMSULOSIN [Concomitant]
  4. DIAZEPAM [Concomitant]
  5. ALEVE [Concomitant]
  6. GLUCOSAMINE CHONDROITIN [Concomitant]
  7. ENSURE [Concomitant]
     Indication: WEIGHT INCREASED

REACTIONS (5)
  - Investigation [Unknown]
  - Drug ineffective [Unknown]
  - Depression [Unknown]
  - Anxiety [Unknown]
  - Weight decreased [Unknown]
